FAERS Safety Report 9120469 (Version 1)
Quarter: 2013Q1

REPORT INFORMATION
  Report Type: Spontaneous
  Country: IT (occurrence: IT)
  Receive Date: 20130226
  Receipt Date: 20130226
  Transmission Date: 20140127
  Serious: Yes (Hospitalization)
  Sender: FDA-Public Use
  Company Number: IT-PFIZER INC-2013067292

PATIENT
  Age: 84 Year
  Sex: Female

DRUGS (20)
  1. HALCION [Suspect]
     Dosage: UNK DF, UNK
     Route: 048
     Dates: end: 20121206
  2. HALCION [Suspect]
     Dosage: 1 DF, SINGLE
     Dates: start: 20121207, end: 20121207
  3. RIVOTRIL [Suspect]
     Dosage: 25 MG, TOTAL DOSE
     Route: 048
     Dates: end: 20121206
  4. RIVOTRIL [Suspect]
     Dosage: 25 MG, TOTAL DOSE
     Dates: start: 20121207, end: 20121207
  5. LEXOTAN [Suspect]
     Dosage: UNK
     Route: 048
     Dates: end: 20121206
  6. LEXOTAN [Suspect]
     Dosage: 50 MG, SINGLE
     Dates: start: 20121207, end: 20121207
  7. ALLOPURINOL [Concomitant]
  8. CALCITRIOL [Concomitant]
  9. ESKIM [Concomitant]
  10. MICARDIS [Concomitant]
  11. GABAPENTINA ABC [Concomitant]
  12. CARDIRENE [Concomitant]
  13. MONOKET [Concomitant]
  14. CONTRAMAL [Concomitant]
  15. ORAMORPH [Concomitant]
  16. EUTIROX [Concomitant]
  17. MEPRAL [Concomitant]
  18. TILDIEM [Concomitant]
  19. LASIX [Concomitant]
  20. TORVAST [Concomitant]

REACTIONS (3)
  - Drug abuse [Recovering/Resolving]
  - Sopor [Recovering/Resolving]
  - Intentional self-injury [Recovering/Resolving]
